FAERS Safety Report 5135253-8 (Version None)
Quarter: 2006Q4

REPORT INFORMATION
  Report Type: 
  Country: None (occurrence: None)
  Receive Date: 20061024
  Receipt Date: 20061024
  Transmission Date: 20070319
  Serious: No
  Sender: FDA-Public Use
  Company Number: None

PATIENT
  Sex: Male
  Weight: 64.2 kg

DRUGS (2)
  1. CYCLOPHOSPHAMIDE [Suspect]
     Dosage: 1040 MG
  2. DOXORUBICIN HYDROCHLORIDE [Suspect]
     Dosage: 105 MG

REACTIONS (6)
  - DIZZINESS [None]
  - FALL [None]
  - HYPERHIDROSIS [None]
  - NEUTROPHIL COUNT DECREASED [None]
  - SYNCOPE [None]
  - WHITE BLOOD CELL COUNT DECREASED [None]
